FAERS Safety Report 11990704 (Version 2)
Quarter: 2016Q2

REPORT INFORMATION
  Report Type: Spontaneous
  Country: None (occurrence: NO)
  Receive Date: 20160202
  Receipt Date: 20160406
  Transmission Date: 20160815
  Serious: Yes (Life-Threatening)
  Sender: FDA-Public Use
  Company Number: NO-MEDAC PHARMA, INC.-1047226

PATIENT
  Age: 59 Year
  Sex: Male
  Weight: 86.8 kg

DRUGS (6)
  1. PREDNISOLONE. [Suspect]
     Active Substance: PREDNISOLONE
     Dates: start: 201402
  2. LOSARTAN POTASSIUM. [Concomitant]
     Active Substance: LOSARTAN POTASSIUM
  3. SIMVASTATIN. [Concomitant]
     Active Substance: SIMVASTATIN
  4. FOLIC ACID. [Concomitant]
     Active Substance: FOLIC ACID
  5. METHOTREXATE [Suspect]
     Active Substance: METHOTREXATE
     Indication: RHEUMATOID ARTHRITIS
     Dates: start: 201402, end: 201512
  6. CIMZIA [Suspect]
     Active Substance: CERTOLIZUMAB PEGOL
     Route: 051
     Dates: start: 201412, end: 201512

REACTIONS (2)
  - Adenocarcinoma of colon [Recovering/Resolving]
  - Large intestine polyp [Recovering/Resolving]

NARRATIVE: CASE EVENT DATE: 20151217
